FAERS Safety Report 21297103 (Version 2)
Quarter: 2022Q3

REPORT INFORMATION
  Report Type: Report from Study
  Country: US (occurrence: US)
  Receive Date: 20220906
  Receipt Date: 20220912
  Transmission Date: 20221026
  Serious: Yes (Other)
  Sender: FDA-Public Use
  Company Number: US-TAKEDA-2022TUS037882

PATIENT
  Age: 63 Year
  Sex: Male

DRUGS (1)
  1. VEDOLIZUMAB [Suspect]
     Active Substance: VEDOLIZUMAB
     Indication: Colitis ulcerative
     Dosage: 300 MILLIGRAM
     Route: 042
     Dates: start: 20220427

REACTIONS (9)
  - Hip arthroplasty [Not Recovered/Not Resolved]
  - Knee operation [Not Recovered/Not Resolved]
  - Haematochezia [Not Recovered/Not Resolved]
  - Nasopharyngitis [Recovered/Resolved]
  - Arthralgia [Not Recovered/Not Resolved]
  - Faeces soft [Not Recovered/Not Resolved]
  - Diarrhoea [Not Recovered/Not Resolved]
  - Colitis [Not Recovered/Not Resolved]
  - Stress [Not Recovered/Not Resolved]

NARRATIVE: CASE EVENT DATE: 20220511
